FAERS Safety Report 9249204 (Version 2)
Quarter: 2013Q2

REPORT INFORMATION
  Report Type: Spontaneous
  Country: US (occurrence: US)
  Receive Date: 20130423
  Receipt Date: 20130425
  Transmission Date: 20140414
  Serious: No
  Sender: FDA-Public Use
  Company Number: US-BAYER-2013-050784

PATIENT
  Sex: 0

DRUGS (3)
  1. ALEVE CAPLET [Suspect]
     Indication: PAIN
     Dosage: UNK
  2. TYLENOL [PARACETAMOL] [Suspect]
  3. IBUPROFEN [Suspect]

REACTIONS (1)
  - Drug ineffective [None]
